FAERS Safety Report 24178235 (Version 1)
Quarter: 2024Q3

REPORT INFORMATION
  Report Type: Spontaneous
  Country: AU (occurrence: AU)
  Receive Date: 20240806
  Receipt Date: 20240806
  Transmission Date: 20241017
  Serious: Yes (Death, Life-Threatening, Hospitalization, Other)
  Sender: ACCORD
  Company Number: AU-MLMSERVICE-20230123-4049628-1

PATIENT
  Age: 55 Year
  Sex: Male

DRUGS (11)
  1. MYCOPHENOLATE MOFETIL [Suspect]
     Active Substance: MYCOPHENOLATE MOFETIL
     Indication: Immunosuppressant drug therapy
  2. TACROLIMUS [Suspect]
     Active Substance: TACROLIMUS
     Indication: Immunosuppressant drug therapy
  3. BELATACEPT [Suspect]
     Active Substance: BELATACEPT
     Indication: Immunosuppressant drug therapy
  4. PREDNISONE [Suspect]
     Active Substance: PREDNISONE
     Indication: Immunosuppressant drug therapy
  5. THYMOCYTE IMMUNE GLOBULIN NOS [Suspect]
     Active Substance: THYMOCYTE IMMUNE GLOBULIN NOS
     Indication: Immunosuppressant drug therapy
  6. SULFAMETHOXAZOLE\TRIMETHOPRIM [Concomitant]
     Active Substance: SULFAMETHOXAZOLE\TRIMETHOPRIM
     Indication: Prophylaxis
  7. ASPIRIN [Concomitant]
     Active Substance: ASPIRIN
  8. VALGANCICLOVIR HYDROCHLORIDE [Concomitant]
     Active Substance: VALGANCICLOVIR HYDROCHLORIDE
  9. LABETALOL [Concomitant]
     Active Substance: LABETALOL\LABETALOL HYDROCHLORIDE
  10. NIFEDIPINE [Concomitant]
     Active Substance: NIFEDIPINE
  11. ATORVASTATIN [Concomitant]
     Active Substance: ATORVASTATIN

REACTIONS (12)
  - Electrocardiogram ST segment elevation [Fatal]
  - Hypotension [Unknown]
  - Acute kidney injury [Unknown]
  - Septic shock [Unknown]
  - Disseminated tuberculosis [Fatal]
  - Pulmonary mass [Unknown]
  - Cardiomyopathy [Fatal]
  - Hypercalcaemia [Unknown]
  - Pseudomonas infection [Unknown]
  - Condition aggravated [Unknown]
  - Cardiogenic shock [Fatal]
  - Splenomegaly [Unknown]
